FAERS Safety Report 20714311 (Version 1)
Quarter: 2022Q2

REPORT INFORMATION
  Report Type: Spontaneous
  Country: IT (occurrence: IT)
  Receive Date: 20220415
  Receipt Date: 20220415
  Transmission Date: 20220721
  Serious: Yes (Other)
  Sender: FDA-Public Use
  Company Number: IT-BoehringerIngelheim-2022-BI-158896

PATIENT
  Age: 94 Year
  Sex: Female

DRUGS (2)
  1. VERAPAMIL [Interacting]
     Active Substance: VERAPAMIL HYDROCHLORIDE
     Indication: Product used for unknown indication
     Dosage: UNK
  2. DABIGATRAN [Interacting]
     Active Substance: DABIGATRAN
     Indication: Atrial fibrillation
     Dosage: UNK
     Route: 048

REACTIONS (7)
  - Anuria [Unknown]
  - Anaemia [Unknown]
  - Sopor [Unknown]
  - Drug interaction [Unknown]
  - Asthenia [Unknown]
  - Toxicity to various agents [Unknown]
  - Presyncope [Unknown]
